FAERS Safety Report 9203765 (Version 1)
Quarter: 2013Q1

REPORT INFORMATION
  Report Type: Spontaneous
  Country: US (occurrence: None)
  Receive Date: 20130329
  Receipt Date: 20130329
  Transmission Date: 20140127
  Serious: No
  Sender: FDA-Public Use
  Company Number: None

PATIENT
  Sex: Male
  Weight: 90.5 kg

DRUGS (1)
  1. RISPERDAL [Suspect]
     Indication: TIC
     Route: 048
     Dates: start: 20120423

REACTIONS (1)
  - No therapeutic response [None]
